FAERS Safety Report 6502576-7 (Version None)
Quarter: 2009Q4

REPORT INFORMATION
  Report Type: 
  Country: None (occurrence: None)
  Receive Date: 20091127
  Receipt Date: 20090811
  Transmission Date: 20100525
  Serious: No
  Sender: FDA-Public Use
  Company Number: 001514

PATIENT
  Age: 37 Year
  Sex: Female

DRUGS (10)
  1. LACOSAMIDE [Suspect]
     Indication: EPILEPSY
     Dosage: (1000 MG ORAL)
     Route: 048
     Dates: start: 20090615
  2. KEPPRA [Suspect]
     Indication: EPILEPSY
     Dosage: (1500 MG ORAL), (2000 MG ORAL)
     Route: 048
     Dates: end: 20090614
  3. PRENATAL VITAMINS /01549301/ [Concomitant]
  4. CLARITAN /00917501/ [Concomitant]
  5. ALBUTEROL [Concomitant]
  6. MUCINEX [Concomitant]
  7. GLYBURIDE [Concomitant]
  8. LANTUS [Concomitant]
  9. CHROMAGEN FORTE [Concomitant]
  10. ADVAIR [Concomitant]

REACTIONS (1)
  - DRUG EXPOSURE DURING PREGNANCY [None]
